FAERS Safety Report 13120579 (Version 1)
Quarter: 2017Q1

REPORT INFORMATION
  Report Type: Spontaneous
  Country: US (occurrence: US)
  Receive Date: 20170117
  Receipt Date: 20170117
  Transmission Date: 20170428
  Serious: No
  Sender: FDA-Public Use
  Company Number: US-PFIZER INC-2017017970

PATIENT
  Age: 42 Year
  Sex: Female
  Weight: 72.57 kg

DRUGS (3)
  1. ALAVERT ALLERGY [Suspect]
     Active Substance: LORATADINE
     Indication: LACRIMATION INCREASED
  2. ALAVERT ALLERGY [Suspect]
     Active Substance: LORATADINE
     Indication: EYE PRURITUS
     Dosage: 10MG ORALLY DISINTEGRATING TABLETS
     Route: 048
     Dates: start: 20170112
  3. ALAVERT ALLERGY [Suspect]
     Active Substance: LORATADINE
     Indication: SNEEZING

REACTIONS (3)
  - Condition aggravated [Recovered/Resolved]
  - Sneezing [Recovered/Resolved]
  - Drug ineffective [Unknown]
